FAERS Safety Report 7962327-6 (Version None)
Quarter: 2011Q4

REPORT INFORMATION
  Report Type: 
  Country: None (occurrence: None)
  Receive Date: 20111206
  Receipt Date: 20111129
  Transmission Date: 20120403
  Serious: Yes (Death, Hospitalization)
  Sender: FDA-Public Use
  Company Number: AUR-APL-2011-05991

PATIENT
  Age: 40 Year
  Sex: Male

DRUGS (3)
  1. ROSIGLITAZONE (METFORMIN (METFORMIN W/ROSIGLITAZONE) [Concomitant]
  2. TOPIRAMATE [Suspect]
     Indication: CONVULSION
  3. DIVALPROEX (VALPROATE SEMISODIUM) [Concomitant]

REACTIONS (13)
  - ATRIOVENTRICULAR BLOCK [None]
  - ELECTROCARDIOGRAM T WAVE ABNORMAL [None]
  - SUPRAVENTRICULAR TACHYCARDIA [None]
  - BLOOD PH DECREASED [None]
  - BLOOD CREATINE PHOSPHOKINASE INCREASED [None]
  - DRY SKIN [None]
  - BUNDLE BRANCH BLOCK RIGHT [None]
  - MYOCARDIAL INFARCTION [None]
  - UNRESPONSIVE TO STIMULI [None]
  - HYPOHIDROSIS [None]
  - BLOOD CREATININE INCREASED [None]
  - HYPERTHERMIA [None]
  - CARDIAC ARREST [None]
